FAERS Safety Report 9333478 (Version 1)
Quarter: 2013Q2

REPORT INFORMATION
  Report Type: Spontaneous
  Country: US (occurrence: None)
  Receive Date: 20130604
  Receipt Date: 20130604
  Transmission Date: 20140414
  Serious: Yes (Other)
  Sender: FDA-Public Use
  Company Number: DSU-2013-03457

PATIENT
  Age: 7 Decade
  Sex: Male
  Weight: 77.11 kg

DRUGS (4)
  1. WELCHOL [Suspect]
     Indication: PRODUCT USED FOR UNKNOWN INDICATION
     Route: 048
     Dates: start: 2012
  2. WELCHOL [Suspect]
     Indication: HYPERCHOLESTEROLAEMIA
     Route: 048
     Dates: start: 2011, end: 2012
  3. LISINOPRIL [Concomitant]
  4. INSULIN [Concomitant]

REACTIONS (2)
  - Hepatic cancer [None]
  - Abdominal pain upper [None]
